FAERS Safety Report 7149384-4 (Version None)
Quarter: 2010Q4

REPORT INFORMATION
  Report Type: 
  Country: None (occurrence: None)
  Receive Date: 20101209
  Receipt Date: 20101122
  Transmission Date: 20110411
  Serious: Yes (Other)
  Sender: FDA-Public Use
  Company Number: NL-AMGEN-NLDSP2010006681

PATIENT

DRUGS (2)
  1. ENBREL [Suspect]
     Indication: RHEUMATOID ARTHRITIS
     Dosage: 50 MG, WEEKLY
  2. ARCOXIA [Concomitant]

REACTIONS (4)
  - ABDOMINAL ADHESIONS [None]
  - DYSPNOEA EXERTIONAL [None]
  - HEPATIC STEATOSIS [None]
  - INTESTINAL STEATOSIS [None]
